FAERS Safety Report 7666798-4 (Version None)
Quarter: 2011Q3

REPORT INFORMATION
  Report Type: 
  Country: None (occurrence: None)
  Receive Date: 20110806
  Receipt Date: 20110225
  Transmission Date: 20111222
  Serious: No
  Sender: FDA-Public Use
  Company Number: US-ABBOTT-11P-163-0707796-00

PATIENT
  Sex: Male
  Weight: 113.5 kg

DRUGS (3)
  1. NIASPAN [Suspect]
     Indication: BLOOD CHOLESTEROL
     Dosage: AT BEDTIME
     Route: 048
     Dates: start: 20100501
  2. LAMASIL [Concomitant]
     Indication: NAIL INFECTION
     Route: 048
  3. NIASPAN [Suspect]
     Dosage: AT BEDTIME
     Route: 048

REACTIONS (4)
  - FLUSHING [None]
  - FEELING HOT [None]
  - PARAESTHESIA [None]
  - PRURITUS [None]
